FAERS Safety Report 15713732 (Version 2)
Quarter: 2019Q1

REPORT INFORMATION
  Report Type: Spontaneous
  Country: US (occurrence: US)
  Receive Date: 20181212
  Receipt Date: 20190204
  Transmission Date: 20190417
  Serious: No
  Sender: FDA-Public Use
  Company Number: US-AMGEN-USASP2018174755

PATIENT
  Age: 80 Year
  Sex: Female

DRUGS (1)
  1. PROLIA [Suspect]
     Active Substance: DENOSUMAB
     Indication: OSTEOPOROSIS POSTMENOPAUSAL
     Dosage: UNK
     Route: 065
     Dates: start: 20180907

REACTIONS (5)
  - Groin pain [Recovering/Resolving]
  - Gastroenteritis viral [Recovered/Resolved]
  - Arthralgia [Recovering/Resolving]
  - Sleep disorder due to a general medical condition [Unknown]
  - Arthritis [Unknown]

NARRATIVE: CASE EVENT DATE: 2018
